FAERS Safety Report 9879489 (Version 2)
Quarter: 2014Q1

REPORT INFORMATION
  Report Type: Spontaneous
  Country: IT (occurrence: IT)
  Receive Date: 20140206
  Receipt Date: 20140218
  Transmission Date: 20141002
  Serious: Yes (Other)
  Sender: FDA-Public Use
  Company Number: IT-PFIZER INC-2014032942

PATIENT
  Age: 83 Year
  Sex: Female
  Weight: 66 kg

DRUGS (8)
  1. ESCITALOPRAM OXALATE [Suspect]
     Indication: DEPRESSION
     Dosage: 5 MG, 1X/DAY
     Route: 065
  2. ESCITALOPRAM OXALATE [Interacting]
     Dosage: 10 MG, DAILY
     Route: 065
  3. ESCITALOPRAM OXALATE [Interacting]
     Dosage: 10 MG, UNK
     Route: 065
  4. GLIBENCLAMIDE [Interacting]
     Indication: TYPE 2 DIABETES MELLITUS
     Dosage: 7.5 MG, 3X/DAY
     Route: 065
  5. GLIBENCLAMIDE [Interacting]
     Dosage: 5 MG, 3X/DAY
     Route: 065
  6. GLIBENCLAMIDE [Interacting]
     Dosage: 2.5 MG, 3X/DAY
     Route: 065
  7. ENAP-HL [Concomitant]
     Dosage: UNK
     Route: 065
  8. DOXAZOSIN [Concomitant]
     Dosage: 2 MG, 1X/DAY
     Route: 065

REACTIONS (3)
  - Drug interaction [Recovered/Resolved]
  - Hyperglycaemia [Recovered/Resolved]
  - Diabetes mellitus inadequate control [Recovered/Resolved]
